FAERS Safety Report 4988709-2 (Version None)
Quarter: 2006Q2

REPORT INFORMATION
  Report Type: 
  Country: None (occurrence: None)
  Receive Date: 20060502
  Receipt Date: 20051110
  Transmission Date: 20061013
  Serious: Yes (Hospitalization)
  Sender: FDA-Public Use
  Company Number: US-MERCK-0511USA02073

PATIENT
  Age: 57 Year
  Sex: Male
  Weight: 102 kg

DRUGS (1)
  1. VIOXX [Suspect]
     Indication: ARTHRITIS
     Route: 048
     Dates: start: 19990701, end: 20030901

REACTIONS (7)
  - ANHEDONIA [None]
  - ARTHRALGIA [None]
  - BIPOLAR I DISORDER [None]
  - CEREBROVASCULAR ACCIDENT [None]
  - CHEST PAIN [None]
  - MENTAL DISORDER [None]
  - MYOCARDIAL INFARCTION [None]
